FAERS Safety Report 22242164 (Version 4)
Quarter: 2023Q2

REPORT INFORMATION
  Report Type: Spontaneous
  Country: US (occurrence: US)
  Receive Date: 20230422
  Receipt Date: 20230609
  Transmission Date: 20230722
  Serious: Yes (Hospitalization, Other)
  Sender: FDA-Public Use
  Company Number: US-UNITED THERAPEUTICS-UNT-2023-009164

PATIENT
  Age: 58 Year
  Sex: Female
  Weight: 64.399 kg

DRUGS (4)
  1. REMODULIN [Suspect]
     Active Substance: TREPROSTINIL
     Indication: Pulmonary arterial hypertension
     Dosage: 0.038 ?G/KG (PHARMACY FILLED REMUNITY; PRE-FILLED WITH 2.8 ML PER CASSETTE; AT AN INFUSION RATE OF 2
     Route: 058
  2. REMODULIN [Suspect]
     Active Substance: TREPROSTINIL
     Dosage: UNK, CONTINUING
     Route: 058
     Dates: start: 20230208
  3. ADEMPAS [Concomitant]
     Active Substance: RIOCIGUAT
     Indication: Product used for unknown indication
     Dosage: UNK
     Route: 065
  4. OPSUMIT [Concomitant]
     Active Substance: MACITENTAN
     Indication: Product used for unknown indication
     Dosage: UNK
     Route: 065

REACTIONS (11)
  - Pericardial effusion [Recovering/Resolving]
  - Pleural effusion [Recovering/Resolving]
  - Pneumonia [Recovering/Resolving]
  - Pulmonary oedema [Unknown]
  - Oedema peripheral [Unknown]
  - Localised oedema [Unknown]
  - Hypervolaemia [Unknown]
  - Lung disorder [Unknown]
  - Infection [Unknown]
  - Device leakage [Unknown]
  - Device leakage [Unknown]

NARRATIVE: CASE EVENT DATE: 20230404
